FAERS Safety Report 9607596 (Version 2)
Quarter: 2013Q4

REPORT INFORMATION
  Report Type: Spontaneous
  Country: PL (occurrence: PL)
  Receive Date: 20131009
  Receipt Date: 20131122
  Transmission Date: 20140711
  Serious: Yes (Hospitalization)
  Sender: FDA-Public Use
  Company Number: PHHY2013PL112338

PATIENT
  Age: 42 Year
  Sex: Female
  Weight: 60 kg

DRUGS (1)
  1. GILENYA [Suspect]
     Indication: MULTIPLE SCLEROSIS
     Dosage: 0.5 MG, QD
     Route: 048
     Dates: start: 201210, end: 201303

REACTIONS (9)
  - Hepatic failure [Recovering/Resolving]
  - Hepatocellular injury [Unknown]
  - Hepatic enzyme increased [Unknown]
  - Transaminases increased [Unknown]
  - Coagulopathy [Unknown]
  - Hypothermia [Recovering/Resolving]
  - Hypotonia [Unknown]
  - Leukopenia [Recovering/Resolving]
  - Lymphopenia [Recovering/Resolving]
